FAERS Safety Report 9380461 (Version 1)
Quarter: 2013Q2

REPORT INFORMATION
  Report Type: Spontaneous
  Country: FR (occurrence: None)
  Receive Date: 20130628
  Receipt Date: 20130628
  Transmission Date: 20140414
  Serious: Yes (Other)
  Sender: FDA-Public Use
  Company Number: 2013P1010161

PATIENT
  Sex: Female

DRUGS (2)
  1. NICARDIPINE [Suspect]
     Indication: PREMATURE LABOUR
  2. TACROLIMUS [Suspect]

REACTIONS (3)
  - Pulmonary oedema [None]
  - Drug interaction [None]
  - Exposure during pregnancy [None]
